FAERS Safety Report 6441663-9 (Version None)
Quarter: 2009Q4

REPORT INFORMATION
  Report Type: 
  Country: None (occurrence: None)
  Receive Date: 20091116
  Receipt Date: 20091103
  Transmission Date: 20100525
  Serious: Yes (Hospitalization)
  Sender: FDA-Public Use
  Company Number: PL-AMGEN-US374324

PATIENT
  Sex: Female
  Weight: 81 kg

DRUGS (5)
  1. ENBREL [Suspect]
     Indication: RHEUMATOID ARTHRITIS
     Dosage: ONCE A WEEK
     Route: 058
     Dates: start: 20071231, end: 20090310
  2. HYDROCHLOROTHIAZIDE [Concomitant]
     Dosage: 12.5 MG TABLES QAD
     Route: 048
  3. ENARENAL [Concomitant]
     Route: 048
  4. METYPRED [Concomitant]
     Dosage: 16 MG TABLET
     Route: 048
  5. BISOCARD [Concomitant]
     Dosage: 5 MG TABLETS QAD
     Route: 048

REACTIONS (1)
  - LIVER INJURY [None]
